FAERS Safety Report 5255548-7 (Version None)
Quarter: 2007Q1

REPORT INFORMATION
  Report Type: 
  Country: None (occurrence: None)
  Receive Date: 20070305
  Receipt Date: 20070302
  Transmission Date: 20070707
  Serious: Yes (Other)
  Sender: FDA-Public Use
  Company Number: GBWYE071525MAR03

PATIENT
  Sex: Male
  Weight: 55.4 kg

DRUGS (7)
  1. RAPAMUNE [Suspect]
     Indication: RENAL TRANSPLANT
     Route: 048
     Dates: start: 20030311, end: 20030311
  2. RAPAMUNE [Suspect]
     Indication: IMMUNOSUPPRESSION
     Route: 048
     Dates: start: 20030312, end: 20030319
  3. RAPAMUNE [Suspect]
     Route: 048
     Dates: start: 20030320, end: 20040318
  4. ATORVASTATIN [Concomitant]
     Indication: BLOOD CHOLESTEROL INCREASED
     Dosage: UNKNOWN
  5. IRBESARTAN [Concomitant]
     Indication: HYPERTENSION
     Dosage: UNKNOWN
  6. PREDNISOLONE [Concomitant]
  7. AZATHIOPRINE [Concomitant]

REACTIONS (1)
  - DRUG LEVEL ABOVE THERAPEUTIC [None]
